FAERS Safety Report 15048824 (Version 1)
Quarter: 2018Q2

REPORT INFORMATION
  Report Type: Spontaneous
  Country: US (occurrence: US)
  Receive Date: 20180622
  Receipt Date: 20180622
  Transmission Date: 20180711
  Serious: No
  Sender: FDA-Public Use
  Company Number: US-PFIZER INC-2018255039

PATIENT
  Age: 49 Year
  Sex: Male

DRUGS (5)
  1. E-MYCIN [Suspect]
     Active Substance: ERYTHROMYCIN
     Dosage: UNK
  2. AMPICILLIN SODIUM. [Suspect]
     Active Substance: AMPICILLIN SODIUM
     Dosage: UNK
  3. TETRACYCLINE HCL [Suspect]
     Active Substance: TETRACYCLINE HYDROCHLORIDE
     Dosage: UNK
  4. XELJANZ XR [Concomitant]
     Active Substance: TOFACITINIB CITRATE
     Dosage: 5 MG PO, QUANTITY, 1X/DAY (30 DAYS)
  5. XELJANZ XR [Concomitant]
     Active Substance: TOFACITINIB CITRATE
     Dosage: 11 MG, PO QD (14DAYS, 14 TABLETS)

REACTIONS (1)
  - Drug hypersensitivity [Unknown]
